FAERS Safety Report 4817578-6 (Version None)
Quarter: 2005Q4

REPORT INFORMATION
  Report Type: 
  Country: None (occurrence: None)
  Receive Date: 20051031
  Receipt Date: 20051026
  Transmission Date: 20060501
  Serious: Yes (Congenital Anomaly)
  Sender: FDA-Public Use
  Company Number: FRVA20050029

PATIENT
  Age: 41 Year
  Sex: Female

DRUGS (1)
  1. FROVATRIPTAN [Suspect]
     Dosage: 5 MG ONCE PO
     Route: 048
     Dates: end: 20041009

REACTIONS (5)
  - ABORTION INDUCED [None]
  - CERVICAL CYST [None]
  - DRUG EXPOSURE DURING PREGNANCY [None]
  - HYDROPS FOETALIS [None]
  - INTRA-UTERINE DEATH [None]
